FAERS Safety Report 16580094 (Version 15)
Quarter: 2021Q3

REPORT INFORMATION
  Report Type: Report from Study
  Country: US (occurrence: US)
  Receive Date: 20190716
  Receipt Date: 20210915
  Transmission Date: 20211014
  Serious: Yes (Hospitalization, Other)
  Sender: FDA-Public Use
  Company Number: US-MALLINCKRODT-T201903657

PATIENT
  Age: 80 Year
  Sex: Female

DRUGS (17)
  1. REPOSITORY CORTICOTROPIN INJECTION [Suspect]
     Active Substance: CORTICOTROPIN
     Dosage: 40 UNITS. ONCE WEEKLY
     Route: 058
     Dates: start: 20200613, end: 2020
  2. REPOSITORY CORTICOTROPIN INJECTION [Suspect]
     Active Substance: CORTICOTROPIN
     Dosage: 80 UNITS. TWICE WEEKLY
     Route: 065
     Dates: start: 2020, end: 202105
  3. COMBIGAN [Concomitant]
     Active Substance: BRIMONIDINE TARTRATE\TIMOLOL MALEATE
     Indication: PRODUCT USED FOR UNKNOWN INDICATION
     Dosage: UNK
     Route: 065
  4. REPOSITORY CORTICOTROPIN INJECTION [Suspect]
     Active Substance: CORTICOTROPIN
     Indication: IRIDOCYCLITIS
     Dosage: 40 UNITS/0.5 ML, 2 TIMES PER WEEK (TUESDAY/SATURDAY)
     Route: 058
     Dates: start: 201904, end: 20190422
  5. REPOSITORY CORTICOTROPIN INJECTION [Suspect]
     Active Substance: CORTICOTROPIN
     Dosage: UNKNOWN
     Route: 065
     Dates: start: 2021
  6. METHOTREXATE. [Concomitant]
     Active Substance: METHOTREXATE
     Indication: ARTHRITIS
     Dosage: UNK, WEEKLY (EVERY MONDAY)
     Route: 065
  7. OCUFLOX [Concomitant]
     Active Substance: OFLOXACIN
     Indication: PRODUCT USED FOR UNKNOWN INDICATION
     Dosage: UNK
     Route: 065
  8. PRED FORTE [Concomitant]
     Active Substance: PREDNISOLONE ACETATE
     Indication: PRODUCT USED FOR UNKNOWN INDICATION
     Dosage: UNK
     Route: 065
  9. VALACYCLOVIR [Concomitant]
     Active Substance: VALACYCLOVIR HYDROCHLORIDE
     Indication: PRODUCT USED FOR UNKNOWN INDICATION
     Dosage: UNK
     Route: 065
  10. REPOSITORY CORTICOTROPIN INJECTION [Suspect]
     Active Substance: CORTICOTROPIN
     Dosage: 40UNITS/0.5 ML, 2 TIMES PER WEEK(TUESDAY/SUTURDAY)
     Route: 058
     Dates: start: 2019
  11. XARELTO [Concomitant]
     Active Substance: RIVAROXABAN
     Indication: ANTICOAGULANT THERAPY
     Dosage: UNK
     Route: 065
  12. RESTASIS [Concomitant]
     Active Substance: CYCLOSPORINE
     Indication: PRODUCT USED FOR UNKNOWN INDICATION
     Dosage: UNK
     Route: 065
  13. REPOSITORY CORTICOTROPIN INJECTION [Suspect]
     Active Substance: CORTICOTROPIN
     Dosage: 40 UNITS/0.5 ML, 2 TIMES PER WEEK (TUESDAY/SATURDAY)
     Route: 058
     Dates: start: 20190423, end: 2019
  14. REPOSITORY CORTICOTROPIN INJECTION [Suspect]
     Active Substance: CORTICOTROPIN
     Dosage: 40 UNITS / .5 ML, 2 TIMES PER WEEK (TUESDAY/SATURDAY)
     Route: 058
  15. REPOSITORY CORTICOTROPIN INJECTION [Suspect]
     Active Substance: CORTICOTROPIN
     Indication: UVEITIS
     Dosage: 40 UNITS/0.5 ML, 2 TIMES PER WEEK (TUESDAY/SATURDAY)
     Route: 058
     Dates: start: 20180323, end: 20190409
  16. REPOSITORY CORTICOTROPIN INJECTION [Suspect]
     Active Substance: CORTICOTROPIN
     Dosage: 40 UNITS/0.5 ML, 2 TIMES PER WEEK (TUESDAY/SATURDAY)
     Route: 058
     Dates: start: 20190625, end: 2019
  17. REPOSITORY CORTICOTROPIN INJECTION [Suspect]
     Active Substance: CORTICOTROPIN
     Dosage: 40 UNITS/0.5 ML 2 TIMES PER WEEK (TUESDAY/SATURDAY)
     Route: 058
     Dates: end: 2020

REACTIONS (24)
  - Coronavirus infection [Unknown]
  - Coronary arterial stent insertion [Unknown]
  - Osteopenia [Unknown]
  - Catheterisation cardiac [Unknown]
  - Cough [Unknown]
  - Eyelid disorder [Not Recovered/Not Resolved]
  - Hypertension [Unknown]
  - Pneumonia [Unknown]
  - Gastrointestinal disorder [Unknown]
  - Coronary revascularisation [Unknown]
  - Lung disorder [Not Recovered/Not Resolved]
  - Urinary tract infection [Unknown]
  - Visual impairment [Not Recovered/Not Resolved]
  - Dry eye [Not Recovered/Not Resolved]
  - Product dose omission issue [Recovered/Resolved]
  - Cardiac disorder [Unknown]
  - Cardiac ablation [Unknown]
  - Heart rate decreased [Not Recovered/Not Resolved]
  - Cardiac pacemaker insertion [Unknown]
  - Renal disorder [Not Recovered/Not Resolved]
  - Atrial fibrillation [Not Recovered/Not Resolved]
  - Arthritis [Not Recovered/Not Resolved]
  - Deep vein thrombosis [Unknown]
  - Fatigue [Not Recovered/Not Resolved]

NARRATIVE: CASE EVENT DATE: 2019
